FAERS Safety Report 8197888-8 (Version None)
Quarter: 2012Q1

REPORT INFORMATION
  Report Type: 
  Country: None (occurrence: None)
  Receive Date: 20120309
  Receipt Date: 20120302
  Transmission Date: 20120608
  Serious: Yes (Other)
  Sender: FDA-Public Use
  Company Number: US-B.I. PHARMACEUTICALS,INC./RIDGEFIELD-2012-EU-01295GD

PATIENT
  Age: 73 Year
  Sex: Female

DRUGS (3)
  1. LEVALBUTEROL HCL [Suspect]
     Dosage: 0.63 MG 2-3 TIMES A DAY (ALTERNATING ADMINISTRATION OF LEVALBUTEROL AND ALBUTEROL EVERY 4-6 HOURS)
     Route: 055
  2. ATROVENT [Suspect]
     Dosage: 500 MCG EVERY 4 TO 6 HOURS
     Route: 055
  3. ALBUTEROL [Suspect]
     Dosage: 2.5 MG 2-3 TIMES A DAY (ALTERNATING ADMINISTRATION OF LEVALBUTEROL AND ALBUTEROL EVERY 4-6 HOURS)
     Route: 055

REACTIONS (1)
  - VENTRICULAR TACHYCARDIA [None]
